FAERS Safety Report 15148228 (Version 3)
Quarter: 2018Q3

REPORT INFORMATION
  Report Type: Report from Study
  Country: BE (occurrence: BE)
  Receive Date: 20180716
  Receipt Date: 20180815
  Transmission Date: 20181010
  Serious: Yes (Death, Hospitalization)
  Sender: FDA-Public Use
  Company Number: BE-ROCHE-2153762

PATIENT
  Age: 72 Year
  Sex: Female
  Weight: 33 kg

DRUGS (15)
  1. FRAXIPARINE [Concomitant]
     Active Substance: NADROPARIN CALCIUM
     Indication: PROPHYLAXIS
     Route: 058
     Dates: start: 20180710
  2. IBUPROFEN. [Concomitant]
     Active Substance: IBUPROFEN
     Route: 048
     Dates: start: 20180503
  3. XGEVA [Concomitant]
     Active Substance: DENOSUMAB
     Route: 058
     Dates: start: 20180515
  4. LITICAN [Concomitant]
     Active Substance: ALIZAPRIDE HYDROCHLORIDE
     Route: 048
     Dates: start: 20180710
  5. ATEZOLIZUMAB. [Suspect]
     Active Substance: ATEZOLIZUMAB
     Indication: NON-SMALL CELL LUNG CANCER
     Dosage: MOST RECENT DOSE OF ATEZOLIZUMAB 1200 MG PRIOR TO EVENT ONSET WAS ON 27/JUN/2018.
     Route: 042
  6. METATOP (BELGIUM) [Concomitant]
     Indication: INSOMNIA
     Route: 048
     Dates: start: 2018, end: 20180709
  7. PANTOMED (BELGIUM) [Concomitant]
     Indication: PROPHYLAXIS
     Route: 048
     Dates: start: 20180627
  8. KCL [Concomitant]
     Active Substance: POTASSIUM CHLORIDE
     Dosage: 40 OTHER
     Route: 042
     Dates: start: 20180627, end: 20180627
  9. KALIUM RETARD [Concomitant]
     Route: 048
     Dates: start: 20180711, end: 20180711
  10. D?CURE [Concomitant]
     Active Substance: CHOLECALCIFEROL
     Dosage: 1 AMPULE
     Route: 048
     Dates: start: 20180607
  11. COMBIVENT [Concomitant]
     Active Substance: ALBUTEROL SULFATE\IPRATROPIUM BROMIDE
     Route: 065
     Dates: start: 20180710
  12. STEROPOTASSIUM [Concomitant]
     Route: 048
     Dates: start: 20180712, end: 20180716
  13. ONBREZ [Concomitant]
     Active Substance: INDACATEROL
     Route: 045
     Dates: start: 20180627, end: 20180709
  14. CALCIUM CARBONATE. [Concomitant]
     Active Substance: CALCIUM CARBONATE
     Indication: HYPOCALCAEMIA
     Route: 048
     Dates: start: 20180607, end: 20180710
  15. CALCIUM CARBONATE. [Concomitant]
     Active Substance: CALCIUM CARBONATE
     Route: 048
     Dates: start: 20180711

REACTIONS (1)
  - General physical health deterioration [Fatal]

NARRATIVE: CASE EVENT DATE: 20180709
